FAERS Safety Report 8379781-0 (Version None)
Quarter: 2012Q2

REPORT INFORMATION
  Report Type: 
  Country: None (occurrence: None)
  Receive Date: 20120523
  Receipt Date: 20120515
  Transmission Date: 20120825
  Serious: Yes (Other)
  Sender: FDA-Public Use
  Company Number: US-UCBSA-057453

PATIENT
  Age: 65 Year
  Sex: Female
  Weight: 103 kg

DRUGS (5)
  1. CIMZIA [Suspect]
     Dosage: NO OF DOSES-24
     Route: 058
     Dates: start: 20110711, end: 20120502
  2. METHOTREXATE [Concomitant]
     Indication: RHEUMATOID ARTHRITIS
     Dosage: 10 MG QUANTUM SUFFICIAT
     Route: 048
     Dates: start: 20110412
  3. CALCIUM CITRATE WITH VITAMIN D [Concomitant]
     Indication: OSTEOPOROSIS PROPHYLAXIS
     Route: 048
     Dates: start: 20070919
  4. LISINOPRIL [Concomitant]
     Indication: HYPERTENSION
     Route: 048
     Dates: start: 20110501
  5. FOLIC ACID [Concomitant]
     Indication: RHEUMATOID ARTHRITIS
     Route: 048
     Dates: start: 20051025

REACTIONS (1)
  - BREAST CANCER IN SITU [None]
